FAERS Safety Report 8904381 (Version 1)
Quarter: 2012Q4

REPORT INFORMATION
  Report Type: 
  Country: US (occurrence: US)
  Receive Date: 20121112
  Receipt Date: 20121112
  Transmission Date: 20130627
  Serious: No
  Sender: FDA-Public Use
  Company Number: US-009507513-1211USA000517

PATIENT

DRUGS (1)
  1. REMERON [Suspect]
     Dosage: 30-45 mg, qd

REACTIONS (1)
  - Nightmare [Unknown]
